FAERS Safety Report 8816139 (Version 2)
Quarter: 2013Q1

REPORT INFORMATION
  Report Type: Spontaneous
  Country: US (occurrence: US)
  Receive Date: 20120929
  Receipt Date: 20130219
  Transmission Date: 20140127
  Serious: No
  Sender: FDA-Public Use
  Company Number: US-009507513-1209USA010682

PATIENT
  Sex: Male
  Weight: 31.29 kg

DRUGS (1)
  1. ASMANEX TWISTHALER [Suspect]
     Indication: COUGH
     Dosage: UNK
     Route: 055
     Dates: start: 20120922

REACTIONS (3)
  - Drug dose omission [Unknown]
  - Product quality issue [Unknown]
  - No adverse event [Unknown]
